FAERS Safety Report 10613979 (Version 1)
Quarter: 2014Q4

REPORT INFORMATION
  Report Type: Spontaneous
  Country: TR (occurrence: TR)
  Receive Date: 20141128
  Receipt Date: 20141128
  Transmission Date: 20150529
  Serious: Yes (Hospitalization)
  Sender: FDA-Public Use
  Company Number: TR-ABBVIE-14P-161-1312825-00

PATIENT
  Age: 66 Year
  Sex: Female
  Weight: 49 kg

DRUGS (4)
  1. DUODOPA [Suspect]
     Active Substance: CARBIDOPA\LEVODOPA
     Indication: PARKINSON^S DISEASE
     Dosage: MD 4 ML, CD 2.2 ML, ED 1 ML
     Route: 050
     Dates: start: 20141119
  2. PK MERZ [Concomitant]
     Active Substance: AMANTADINE SULFATE
     Indication: PARKINSON^S DISEASE
     Route: 048
     Dates: start: 20100101
  3. MADOPAR HBS [Concomitant]
     Active Substance: BENSERAZIDE HYDROCHLORIDE\LEVODOPA
     Indication: PARKINSON^S DISEASE
     Route: 048
     Dates: start: 20100101
  4. DESYREL [Concomitant]
     Active Substance: TRAZODONE HYDROCHLORIDE
     Indication: SLEEP DISORDER
     Route: 048
     Dates: start: 20141119

REACTIONS (3)
  - Stoma site erythema [Not Recovered/Not Resolved]
  - Stoma site infection [Not Recovered/Not Resolved]
  - Catheter site discharge [Not Recovered/Not Resolved]

NARRATIVE: CASE EVENT DATE: 20141125
